FAERS Safety Report 8692419 (Version 2)
Quarter: 2013Q4

REPORT INFORMATION
  Report Type: Spontaneous
  Country: US (occurrence: US)
  Receive Date: 20120730
  Receipt Date: 20131114
  Transmission Date: 20140711
  Serious: Yes (Hospitalization, Disabling, Other)
  Sender: FDA-Public Use
  Company Number: US-009507513-1207USA007305

PATIENT
  Sex: Female

DRUGS (2)
  1. FOSAMAX [Suspect]
     Indication: OSTEOPOROSIS
     Dosage: 70 MG, QW
     Route: 048
     Dates: start: 2000, end: 2010
  2. ALENDRONATE SODIUM [Suspect]
     Dosage: 70 MG, UNK

REACTIONS (28)
  - Intramedullary rod insertion [Unknown]
  - Femur fracture [Unknown]
  - Surgery [Unknown]
  - Cerebrovascular accident [Unknown]
  - Chronic obstructive pulmonary disease [Unknown]
  - Knee arthroplasty [Unknown]
  - Knee arthroplasty [Unknown]
  - Femur fracture [Unknown]
  - Foot fracture [Unknown]
  - Foot fracture [Unknown]
  - Hypertonic bladder [Unknown]
  - Adverse event [Unknown]
  - Polymyalgia rheumatica [Unknown]
  - Ligament sprain [Unknown]
  - Pain in extremity [Unknown]
  - Spinal column stenosis [Unknown]
  - Intervertebral disc protrusion [Unknown]
  - Tenderness [Unknown]
  - Radiculitis [Unknown]
  - Tonsillectomy [Unknown]
  - Hypertension [Unknown]
  - Hypercholesterolaemia [Unknown]
  - Irritable bowel syndrome [Unknown]
  - Ear, nose and throat examination abnormal [Unknown]
  - Hypoaesthesia [Unknown]
  - Neuropathy peripheral [Unknown]
  - Cardiomegaly [Unknown]
  - Dizziness [Unknown]
